FAERS Safety Report 5697986-4 (Version None)
Quarter: 2008Q2

REPORT INFORMATION
  Report Type: 
  Country: None (occurrence: None)
  Receive Date: 20080404
  Receipt Date: 20080404
  Transmission Date: 20081010
  Serious: Yes (Other)
  Sender: FDA-Public Use
  Company Number: None

PATIENT
  Age: 84 Year
  Sex: Male
  Weight: 68.4932 kg

DRUGS (5)
  1. CIPRO [Suspect]
     Indication: DRUG USE FOR UNKNOWN INDICATION
     Dates: end: 20080201
  2. ONE A DAY CHOLESTEROL PLUS (CHOLESTEROL- AND TRIGLYCER) [Suspect]
     Dosage: 1 DF, QD, ORAL
     Route: 048
     Dates: start: 20080101, end: 20080201
  3. OMEPRAZOLE [Concomitant]
  4. LORAZEPAM [Concomitant]
  5. TERAZOSIN HCL [Concomitant]

REACTIONS (3)
  - ALANINE AMINOTRANSFERASE INCREASED [None]
  - ASPARTATE AMINOTRANSFERASE INCREASED [None]
  - BLOOD ALKALINE PHOSPHATASE INCREASED [None]
